FAERS Safety Report 25983981 (Version 2)
Quarter: 2025Q4

REPORT INFORMATION
  Report Type: Spontaneous
  Country: JP (occurrence: JP)
  Receive Date: 20251031
  Receipt Date: 20251201
  Transmission Date: 20260117
  Serious: No
  Sender: AMGEN
  Company Number: JP-AMGEN-JPNSP2025214198

PATIENT

DRUGS (1)
  1. REPATHA [Suspect]
     Active Substance: EVOLOCUMAB
     Indication: Hypercholesterolaemia
     Dosage: 140 MILLIGRAM
     Route: 058

REACTIONS (2)
  - Paraesthesia [Unknown]
  - Low density lipoprotein increased [Unknown]
